FAERS Safety Report 10257313 (Version 1)
Quarter: 2014Q2

REPORT INFORMATION
  Report Type: Spontaneous
  Country: US (occurrence: None)
  Receive Date: 20140623
  Receipt Date: 20140623
  Transmission Date: 20141212
  Serious: Yes (Other)
  Sender: FDA-Public Use
  Company Number: None

PATIENT
  Age: 56 Year
  Sex: Male

DRUGS (3)
  1. SOVALDI [Suspect]
     Indication: HEPATITIS C
     Dosage: 400 MG QD PO
     Route: 048
     Dates: start: 20140530
  2. SILDENAFIL [Concomitant]
  3. LISINOPRIL [Concomitant]

REACTIONS (3)
  - Photosensitivity reaction [None]
  - Constipation [None]
  - Sleep disorder [None]
